FAERS Safety Report 20511367 (Version 9)
Quarter: 2024Q2

REPORT INFORMATION
  Report Type: Other
  Country: DE (occurrence: None)
  Receive Date: 20220224
  Receipt Date: 20240524
  Transmission Date: 20240716
  Serious: No
  Sender: FDA-Public Use
  Company Number: DE-ROCHE-2593716

PATIENT
  Age: 26 Year
  Sex: Female

DRUGS (11)
  1. OCREVUS [Suspect]
     Active Substance: OCRELIZUMAB
     Indication: Relapsing-remitting multiple sclerosis
     Dosage: 600MG 204 DAYS
     Route: 042
     Dates: start: 20191107, end: 20230616
  2. OCREVUS [Suspect]
     Active Substance: OCRELIZUMAB
     Route: 042
     Dates: start: 20200507
  3. OCREVUS [Suspect]
     Active Substance: OCRELIZUMAB
     Route: 042
     Dates: start: 20201117
  4. BACLOFEN [Concomitant]
     Active Substance: BACLOFEN
  5. MIRTAZAPINE [Concomitant]
     Active Substance: MIRTAZAPINE
  6. MIRTAZAPINE [Concomitant]
     Active Substance: MIRTAZAPINE
  7. SUMATRIPTAN [Concomitant]
     Active Substance: SUMATRIPTAN
     Dosage: AS REQUIRED
  8. AMOXICILLIN\CLAVULANATE POTASSIUM [Concomitant]
     Active Substance: AMOXICILLIN\CLAVULANATE POTASSIUM
     Dosage: 875/125 MG 2X DAILY UNTIL (AND INCLUDING) 24.10.2021
  9. ACETAMINOPHEN [Concomitant]
     Active Substance: ACETAMINOPHEN
  10. CHOLECALCIFEROL [Concomitant]
     Active Substance: CHOLECALCIFEROL
  11. IBUPROFEN [Concomitant]
     Active Substance: IBUPROFEN

REACTIONS (17)
  - Nasopharyngitis [Recovered/Resolved]
  - Fatigue [Recovered/Resolved]
  - Headache [Recovered/Resolved]
  - Cardiovascular disorder [Recovered/Resolved]
  - Oropharyngeal pain [Recovered/Resolved]
  - Cystitis [Recovered/Resolved]
  - Muscular weakness [Recovered/Resolved]
  - Hypotension [Recovered/Resolved]
  - Urinary tract infection [Recovered/Resolved]
  - COVID-19 [Recovered/Resolved]
  - Hypotension [Not Recovered/Not Resolved]
  - Heart rate increased [Recovered/Resolved]
  - Neuralgia [Recovered/Resolved]
  - Dizziness [Recovered/Resolved]
  - Ear discomfort [Recovered/Resolved]
  - B-lymphocyte count decreased [Not Recovered/Not Resolved]
  - Diarrhoea [Not Recovered/Not Resolved]

NARRATIVE: CASE EVENT DATE: 20191107
